FAERS Safety Report 6475220-5 (Version None)
Quarter: 2009Q4

REPORT INFORMATION
  Report Type: 
  Country: None (occurrence: None)
  Receive Date: 20091204
  Receipt Date: 20090508
  Transmission Date: 20100525
  Serious: Yes (Hospitalization, Other)
  Sender: FDA-Public Use
  Company Number: US-ELI_LILLY_AND_COMPANY-US200903002114

PATIENT
  Sex: Female

DRUGS (6)
  1. FORTEO [Suspect]
     Indication: OSTEOPOROSIS
     Dosage: 20 UG, DAILY (1/D)
     Dates: start: 20071101, end: 20080701
  2. FORTEO [Suspect]
     Dosage: 20 UG, DAILY (1/D)
     Dates: start: 20080101, end: 20080101
  3. FORTEO [Suspect]
     Dosage: 20 UG, DAILY (1/D)
     Dates: start: 20080901, end: 20090101
  4. LEVOTHROID [Concomitant]
     Dosage: UNK, DAILY (1/D)
  5. ZIAC [Concomitant]
  6. EFFEXOR XR [Concomitant]
     Dosage: 75 MG, DAILY (1/D)

REACTIONS (1)
  - DIVERTICULITIS [None]
